FAERS Safety Report 9092267 (Version 2)
Quarter: 2013Q2

REPORT INFORMATION
  Report Type: Spontaneous
  Country: US (occurrence: US)
  Receive Date: 20130201
  Receipt Date: 20130514
  Transmission Date: 20140414
  Serious: Yes (Other)
  Sender: FDA-Public Use
  Company Number: US-ELI_LILLY_AND_COMPANY-US201301008025

PATIENT
  Age: 63 Year
  Sex: Female
  Weight: 89.34 kg

DRUGS (2)
  1. CYMBALTA [Suspect]
     Indication: DEPRESSION
     Dosage: 60 MG, QD
     Dates: start: 20100329, end: 201211
  2. CYMBALTA [Suspect]
     Dosage: 30 MG, QD
     Dates: start: 20130123

REACTIONS (9)
  - Suicidal ideation [Recovered/Resolved]
  - Asthenia [Recovered/Resolved]
  - Staring [Recovered/Resolved]
  - Depersonalisation [Recovered/Resolved]
  - Depression [Recovered/Resolved]
  - Mood swings [Recovered/Resolved]
  - Insomnia [Recovered/Resolved]
  - Fatigue [Recovered/Resolved]
  - Drug withdrawal syndrome [Recovered/Resolved]
